FAERS Safety Report 18080171 (Version 1)
Quarter: 2020Q3

REPORT INFORMATION
  Report Type: Report from Study
  Country: None (occurrence: PL)
  Receive Date: 20200728
  Receipt Date: 20200728
  Transmission Date: 20201103
  Serious: Yes (Death, Other)
  Sender: FDA-Public Use
  Company Number: PL-ABBVIE-20K-129-3500499-00

PATIENT

DRUGS (3)
  1. IMBRUVICA [Suspect]
     Active Substance: IBRUTINIB
     Route: 048
  2. IMBRUVICA [Suspect]
     Active Substance: IBRUTINIB
     Route: 048
  3. IMBRUVICA [Suspect]
     Active Substance: IBRUTINIB
     Indication: CHRONIC LYMPHOCYTIC LEUKAEMIA
     Route: 048

REACTIONS (30)
  - Infection [Fatal]
  - Mucosal inflammation [Unknown]
  - Neuropathy peripheral [Unknown]
  - Gastrooesophageal reflux disease [Recovering/Resolving]
  - Arthralgia [Unknown]
  - Pyrexia [Unknown]
  - Lung adenocarcinoma [Unknown]
  - Hyphaema [Unknown]
  - Neutropenia [Unknown]
  - Upper gastrointestinal haemorrhage [Unknown]
  - Dizziness [Unknown]
  - Breast cancer [Fatal]
  - Coronary artery disease [Fatal]
  - Rash [Unknown]
  - Nausea [Unknown]
  - Arrhythmia supraventricular [Unknown]
  - Sepsis [Unknown]
  - Diarrhoea [Unknown]
  - Abdominal pain upper [Unknown]
  - Attention deficit hyperactivity disorder [Unknown]
  - Thrombocytopenia [Unknown]
  - Pneumonia [Unknown]
  - Upper respiratory tract infection [Unknown]
  - Haemorrhagic diathesis [Unknown]
  - Urinary tract infection [Unknown]
  - Facial paralysis [Unknown]
  - Cardiac failure [Unknown]
  - Pleural effusion [Unknown]
  - Atrial fibrillation [Unknown]
  - Herpes zoster [Unknown]
